FAERS Safety Report 25144968 (Version 5)
Quarter: 2025Q2

REPORT INFORMATION
  Report Type: Spontaneous
  Country: US (occurrence: US)
  Receive Date: 20250401
  Receipt Date: 20250617
  Transmission Date: 20250717
  Serious: Yes (Disabling)
  Sender: PFIZER
  Company Number: US-PFIZER INC-PV202500037716

PATIENT
  Age: 68 Year
  Sex: Female

DRUGS (1)
  1. IBRANCE [Suspect]
     Active Substance: PALBOCICLIB

REACTIONS (7)
  - Pleural effusion [Unknown]
  - Fatigue [Unknown]
  - Asthenia [Recovered/Resolved]
  - Gait inability [Unknown]
  - White blood cell count decreased [Unknown]
  - Stomatitis [Unknown]
  - Pain [Recovered/Resolved]
